FAERS Safety Report 4320543-9 (Version None)
Quarter: 2004Q1

REPORT INFORMATION
  Report Type: 
  Country: None (occurrence: None)
  Receive Date: 20040317
  Receipt Date: 20040309
  Transmission Date: 20041129
  Serious: Yes (Other)
  Sender: FDA-Public Use
  Company Number: 2004UW04412

PATIENT
  Age: 13 Year
  Sex: Female

DRUGS (2)
  1. SEROQUEL [Suspect]
  2. SERZONE [Suspect]
     Dosage: 200 MG PO
     Route: 048

REACTIONS (5)
  - DISTURBANCE IN ATTENTION [None]
  - EDUCATIONAL PROBLEM [None]
  - MEDICATION ERROR [None]
  - MOOD SWINGS [None]
  - SOMNOLENCE [None]
